FAERS Safety Report 18429289 (Version 1)
Quarter: 2020Q4

REPORT INFORMATION
  Report Type: Report from Study
  Country: US (occurrence: US)
  Receive Date: 20201026
  Receipt Date: 20201026
  Transmission Date: 20210114
  Serious: Yes (Hospitalization)
  Sender: FDA-Public Use
  Company Number: US-GILEAD-2018-0344803

PATIENT
  Age: 57 Year
  Sex: Female
  Weight: 138 kg

DRUGS (66)
  1. FLUDARABINE [Suspect]
     Active Substance: FLUDARABINE PHOSPHATE
     Indication: BONE MARROW CONDITIONING REGIMEN
     Dosage: 30
     Route: 042
     Dates: start: 20180131, end: 20180131
  2. MESNA. [Suspect]
     Active Substance: MESNA
     Dosage: 500
     Route: 042
     Dates: start: 20180202, end: 20180203
  3. SCHIFF MOVE FREE [Concomitant]
     Active Substance: DIETARY SUPPLEMENT
     Dosage: 2,OTHER,DAILY
     Route: 048
     Dates: start: 20171228
  4. OXYGEN. [Concomitant]
     Active Substance: OXYGEN
     Dosage: 4,L/MIN,AS NECESSARY
     Dates: start: 20180212, end: 20180212
  5. OXYGEN. [Concomitant]
     Active Substance: OXYGEN
     Dosage: 5,L/MIN,AS NECESSARY
     Dates: start: 20180214, end: 20180214
  6. OXYGEN. [Concomitant]
     Active Substance: OXYGEN
     Dosage: 2,L/MIN,AS NECESSARY
     Dates: start: 20180216, end: 20180216
  7. OXYGEN. [Concomitant]
     Active Substance: OXYGEN
     Dosage: 2,L/MIN,AS NECESSARY
     Dates: start: 20180224, end: 20180224
  8. OXYGEN. [Concomitant]
     Active Substance: OXYGEN
     Dosage: 3,L/MIN,AS NECESSARY
     Dates: start: 20180208, end: 20180208
  9. K-DUR [Concomitant]
     Active Substance: POTASSIUM CHLORIDE
     Dosage: 20,OTHER,OTHER
     Route: 048
     Dates: start: 20180225, end: 20180225
  10. DAPSONE. [Concomitant]
     Active Substance: DAPSONE
     Dosage: 100,MG,DAILY
     Route: 048
     Dates: start: 20180208
  11. AXICABTAGENE CILOLEUCEL [Suspect]
     Active Substance: AXICABTAGENE CILOLEUCEL
     Indication: NON-HODGKIN^S LYMPHOMA UNSPECIFIED HISTOLOGY INDOLENT
     Dosage: 1.5 X 10^6 ANTI CD19 CAR+T CELLS/KG, 68 ML, SINGLE
     Route: 042
     Dates: start: 20180205, end: 20180205
  12. CYCLOPHOSPHAMIDE. [Suspect]
     Active Substance: CYCLOPHOSPHAMIDE
     Dosage: 500
     Route: 042
     Dates: start: 20180202, end: 20180202
  13. FLUDARABINE [Suspect]
     Active Substance: FLUDARABINE PHOSPHATE
     Dosage: 30
     Route: 042
     Dates: start: 20180201, end: 20180201
  14. SODIUM CHLORIDE 0.9% [Concomitant]
     Active Substance: SODIUM CHLORIDE
     Dosage: 1000,ML,DAILY
     Route: 041
     Dates: start: 20180131, end: 20180202
  15. SODIUM CHLORIDE 0.9% [Concomitant]
     Active Substance: SODIUM CHLORIDE
     Dosage: 250,ML,OTHER
     Route: 041
     Dates: start: 20180221, end: 20180221
  16. SODIUM CHLORIDE 0.9% [Concomitant]
     Active Substance: SODIUM CHLORIDE
     Dosage: 500,ML,OTHER
     Route: 041
     Dates: start: 20180222, end: 20180222
  17. ZOFRAN [Concomitant]
     Active Substance: ONDANSETRON HYDROCHLORIDE
     Dosage: 16,MG,DAILY
     Route: 048
     Dates: start: 20180131, end: 20180202
  18. TYLENOL [Concomitant]
     Active Substance: ACETAMINOPHEN
     Dosage: 650,MG,OTHER
     Route: 048
     Dates: start: 20180205, end: 20180205
  19. MAXIPIME [Concomitant]
     Active Substance: CEFEPIME HYDROCHLORIDE
     Dosage: 2,G,THREE TIMES DAILY
     Route: 041
     Dates: start: 20180206, end: 20180215
  20. OXYGEN. [Concomitant]
     Active Substance: OXYGEN
     Dosage: 1,L/MIN,AS NECESSARY
     Dates: start: 20180217, end: 20180217
  21. OXYGEN. [Concomitant]
     Active Substance: OXYGEN
     Dosage: 4,L/MIN,AS NECESSARY
     Dates: start: 20180219, end: 20180219
  22. OXYGEN. [Concomitant]
     Active Substance: OXYGEN
     Dosage: 3,L/MIN,AS NECESSARY
     Dates: start: 20180220, end: 20180221
  23. SODIUM CHLORIDE 0.9% [Concomitant]
     Active Substance: SODIUM CHLORIDE
     Dosage: 100,ML,OTHER
     Route: 041
     Dates: start: 20180308, end: 20180308
  24. MUCINEX [Concomitant]
     Active Substance: GUAIFENESIN
     Dosage: 600,MG,TWICE DAILY
     Route: 048
     Dates: start: 20180206, end: 20180211
  25. MAXIPIME [Concomitant]
     Active Substance: CEFEPIME HYDROCHLORIDE
     Dosage: 2,G,AS NECESSARY
     Route: 041
     Dates: start: 20180223, end: 20180224
  26. OXYGEN. [Concomitant]
     Active Substance: OXYGEN
     Dosage: 4,L/MIN,AS NECESSARY
     Dates: start: 20180209, end: 20180209
  27. OXYGEN. [Concomitant]
     Active Substance: OXYGEN
     Dosage: 5,L/MIN,AS NECESSARY
     Dates: start: 20180210, end: 20180210
  28. AMMONIUM LACTATE. [Concomitant]
     Active Substance: AMMONIUM LACTATE
     Dosage: 12,%,DAILY(CREAM)
     Route: 061
     Dates: start: 20180206, end: 20180227
  29. LASIX [Concomitant]
     Active Substance: FUROSEMIDE
     Dosage: 20,MG,DAILY
     Route: 041
     Dates: start: 20180213, end: 20180214
  30. SODIUM CHLORIDE 0.9% [Concomitant]
     Active Substance: SODIUM CHLORIDE
     Dosage: 1000,ML,OTHER
     Route: 041
     Dates: start: 20180223, end: 20180223
  31. OMNIPAQUE [Concomitant]
     Active Substance: IOHEXOL
     Dosage: 176,ML,OTHER
     Route: 041
     Dates: start: 20180129, end: 20180129
  32. HEPARIN [Concomitant]
     Active Substance: HEPARIN SODIUM
     Dosage: 7500,OTHER,THREE TIMES DAILY
     Route: 058
     Dates: start: 20180213, end: 20180223
  33. BENADRYL [Concomitant]
     Active Substance: DIPHENHYDRAMINE HYDROCHLORIDE
     Dosage: 25,MG,OTHER
     Route: 048
     Dates: start: 20180205, end: 20180205
  34. OXYGEN. [Concomitant]
     Active Substance: OXYGEN
     Dosage: 1,OTHER,AS NECESSARY
     Dates: start: 20180206, end: 20180207
  35. OXYGEN. [Concomitant]
     Active Substance: OXYGEN
     Dosage: 5,L/MIN,AS NECESSARY
     Dates: start: 20180215, end: 20180215
  36. K-DUR [Concomitant]
     Active Substance: POTASSIUM CHLORIDE
     Dosage: 40,OTHER,OTHER
     Route: 048
     Dates: start: 20180207, end: 20180207
  37. MESNA. [Suspect]
     Active Substance: MESNA
     Indication: PROPHYLAXIS
     Dosage: 500
     Route: 042
     Dates: start: 20180131, end: 20180201
  38. MESNA. [Suspect]
     Active Substance: MESNA
     Dosage: 500
     Route: 042
     Dates: start: 20180201, end: 20180202
  39. SODIUM CHLORIDE 0.9% [Concomitant]
     Active Substance: SODIUM CHLORIDE
     Dosage: 20,ML,OTHER
     Route: 041
     Dates: start: 20180223, end: 20180223
  40. OXYGEN. [Concomitant]
     Active Substance: OXYGEN
     Dosage: 6,L/MIN,AS NECESSARY
     Dates: start: 20180211, end: 20180211
  41. OXYGEN. [Concomitant]
     Active Substance: OXYGEN
     Dosage: 9,L/MIN,AS NECESSARY
     Dates: start: 20180213, end: 20180213
  42. K-DUR [Concomitant]
     Active Substance: POTASSIUM CHLORIDE
     Dosage: 20,OTHER,OTHER
     Route: 048
     Dates: start: 20180208, end: 20180208
  43. LASIX [Concomitant]
     Active Substance: FUROSEMIDE
     Dosage: 20,MG,OTHER
     Route: 041
     Dates: start: 20180208, end: 20180208
  44. TOCILIZUMAB. [Concomitant]
     Active Substance: TOCILIZUMAB
     Indication: CYTOKINE RELEASE SYNDROME
     Dosage: 800,MG,DAILY
     Route: 041
     Dates: start: 20180209, end: 20180211
  45. FLUDARABINE [Suspect]
     Active Substance: FLUDARABINE PHOSPHATE
     Dosage: 30
     Route: 042
     Dates: start: 20180202, end: 20180202
  46. ZYLOPRIM [Concomitant]
     Active Substance: ALLOPURINOL
     Dosage: 300,MG,DAILY
     Route: 048
     Dates: start: 20180124, end: 20180212
  47. SODIUM CHLORIDE 0.9% [Concomitant]
     Active Substance: SODIUM CHLORIDE
     Dosage: 20,ML,TWICE DAILY
     Route: 041
     Dates: start: 20180129, end: 20180129
  48. ZOVIRAX [Concomitant]
     Active Substance: ACYCLOVIR
     Dosage: 800,MG,TWICE DAILY
     Route: 048
     Dates: start: 20180131, end: 20180510
  49. HEPARIN [Concomitant]
     Active Substance: HEPARIN SODIUM
     Dosage: 7500,OTHER,THREE TIMES DAILY
     Route: 058
     Dates: start: 20180205, end: 20180210
  50. OXYGEN. [Concomitant]
     Active Substance: OXYGEN
     Dosage: 5,L/MIN,AS NECESSARY
     Dates: start: 20180218, end: 20180218
  51. MAGNESIUM SULFATE. [Concomitant]
     Active Substance: MAGNESIUM SULFATE
     Dosage: 1,G,OTHER
     Route: 041
     Dates: start: 20180208, end: 20180208
  52. CYCLOPHOSPHAMIDE. [Suspect]
     Active Substance: CYCLOPHOSPHAMIDE
     Indication: BONE MARROW CONDITIONING REGIMEN
     Dosage: 500
     Route: 042
     Dates: start: 20180131, end: 20180131
  53. CYCLOPHOSPHAMIDE. [Suspect]
     Active Substance: CYCLOPHOSPHAMIDE
     Dosage: 500
     Route: 042
     Dates: start: 20180201, end: 20180201
  54. SODIUM CHLORIDE 0.9% [Concomitant]
     Active Substance: SODIUM CHLORIDE
     Dosage: SODIUM CHLORIDE 0.9%
     Route: 041
     Dates: start: 20180205, end: 20180205
  55. SODIUM CHLORIDE 0.9% [Concomitant]
     Active Substance: SODIUM CHLORIDE
     Dosage: 250,ML,OTHER
     Route: 041
     Dates: start: 20180223, end: 20180223
  56. VERSED [Concomitant]
     Active Substance: MIDAZOLAM HYDROCHLORIDE
     Dosage: 1,MG,OTHER
     Route: 041
     Dates: start: 20180130, end: 20180130
  57. LIDOCAINE-EPINEPHRINE [Concomitant]
     Active Substance: EPINEPHRINE\LIDOCAINE
     Dosage: 10,ML,OTHER (2%)
     Route: 058
     Dates: start: 20180130, end: 20180130
  58. ZOFRAN [Concomitant]
     Active Substance: ONDANSETRON HYDROCHLORIDE
     Dosage: 4,MG,AS NECESSARY
     Route: 041
     Dates: start: 20180206, end: 20180221
  59. DICLOFENAC [Concomitant]
     Active Substance: DICLOFENAC
     Dosage: 75,MG,DAILY
     Route: 048
     Dates: start: 20161021, end: 20180205
  60. SUBLIMAZE [FENTANYL] [Concomitant]
     Dosage: 300,UG,OTHER
     Route: 041
     Dates: start: 20180130, end: 20180130
  61. ACDA [Concomitant]
     Dosage: 5,ML,OTHER
     Route: 050
     Dates: start: 20180130, end: 20180130
  62. HEPARIN [Concomitant]
     Active Substance: HEPARIN SODIUM
     Dosage: 25000,OTHER,OTHER
     Route: 041
     Dates: start: 20180224, end: 20180226
  63. BENADRYL [Concomitant]
     Active Substance: DIPHENHYDRAMINE HYDROCHLORIDE
     Dosage: 25,MG,DAILY
     Route: 041
     Dates: start: 20180209, end: 20180211
  64. TYLENOL [Concomitant]
     Active Substance: ACETAMINOPHEN
     Dosage: 650,MG,AS NECESSARY
     Route: 048
     Dates: start: 20180206, end: 20180211
  65. COMPAZINE [PROCHLORPERAZINE EDISYLATE] [Concomitant]
     Active Substance: PROCHLORPERAZINE EDISYLATE
     Dosage: 10,MG,AS NECESSARY
     Route: 041
     Dates: start: 20180208, end: 20180221
  66. POTASSIUM PHOSPHATES [Concomitant]
     Active Substance: POTASSIUM PHOSPHATE, DIBASIC\POTASSIUM PHOSPHATE, MONOBASIC
     Dosage: 15,OTHER,OTHER
     Route: 041
     Dates: start: 20180209, end: 20180209

REACTIONS (1)
  - Confusional state [Recovered/Resolved]

NARRATIVE: CASE EVENT DATE: 20180210
